FAERS Safety Report 5987414-3 (Version None)
Quarter: 2008Q4

REPORT INFORMATION
  Report Type: 
  Country: None (occurrence: None)
  Receive Date: 20081209
  Receipt Date: 20080122
  Transmission Date: 20090506
  Serious: No
  Sender: FDA-Public Use
  Company Number: US-AMGEN-KDL261731

PATIENT
  Sex: Female

DRUGS (4)
  1. ENBREL [Suspect]
     Indication: RHEUMATOID ARTHRITIS
     Route: 058
     Dates: start: 20080106
  2. METHOTREXATE [Concomitant]
     Dates: start: 20060101
  3. AZULFIDINE EN-TABS [Concomitant]
     Dates: start: 20060101
  4. ARAVA [Concomitant]
     Dates: start: 20060101

REACTIONS (1)
  - URTICARIA [None]
